FAERS Safety Report 7767842-6 (Version None)
Quarter: 2011Q3

REPORT INFORMATION
  Report Type: 
  Country: None (occurrence: None)
  Receive Date: 20110922
  Receipt Date: 20110223
  Transmission Date: 20111222
  Serious: Yes (Other)
  Sender: FDA-Public Use
  Company Number: US-ASTRAZENECA-2007UW02145

PATIENT
  Age: 31 Year
  Sex: Female
  Weight: 117 kg

DRUGS (33)
  1. SEROQUEL [Suspect]
     Route: 048
     Dates: start: 20000101
  2. SEROQUEL [Suspect]
     Route: 048
     Dates: start: 20010901
  3. SEROQUEL [Suspect]
     Route: 048
     Dates: start: 20010901
  4. THORAZINE [Concomitant]
     Dosage: 100 MG MORN,200 MG NIGHT
     Dates: start: 20000101, end: 20020101
  5. CLOZAPINE [Concomitant]
     Dosage: 40 MG FOR A/B 7 MTHS
     Dates: start: 20030101
  6. SEROQUEL [Suspect]
     Route: 048
     Dates: start: 20010901
  7. SEROQUEL [Suspect]
     Route: 048
     Dates: start: 20010901
  8. RISPERDAL [Concomitant]
     Dosage: DONT RECALL DOSAGE FOR A/B 3 MONTHS
     Dates: start: 20070101
  9. COLONOPIN [Concomitant]
     Indication: SCHIZOPHRENIA
     Dosage: DONT RECALL DOSAGE FOR A/B 3 MONTHS
     Dates: start: 20070101
  10. ZOLOFT [Concomitant]
     Dosage: 25 MG FOR 1 WEEK THEN INCREASE TO 50 MG DAILY
     Dates: start: 20011001
  11. SEROQUEL [Suspect]
     Route: 048
     Dates: start: 20000101
  12. SEROQUEL [Suspect]
     Route: 048
     Dates: start: 20000101
  13. LORTAB [Concomitant]
     Dates: start: 20010101
  14. SEROQUEL [Suspect]
     Route: 048
     Dates: start: 20010901
  15. DEPAKOTE [Concomitant]
     Indication: BIPOLAR DISORDER
  16. DEPAKOTE [Concomitant]
     Indication: SCHIZOPHRENIA, PARANOID TYPE
  17. LEVAQUIN [Concomitant]
     Dates: start: 20010101
  18. SEROQUEL [Suspect]
     Route: 048
     Dates: start: 20000101
  19. DEPAKOTE [Concomitant]
     Indication: SCHIZOPHRENIA
  20. GEODON [Concomitant]
     Dates: start: 20070101, end: 20090101
  21. COLONOPIN [Concomitant]
     Indication: DEPRESSION
     Dosage: DONT RECALL DOSAGE FOR A/B 3 MONTHS
     Dates: start: 20070101
  22. COLONOPIN [Concomitant]
     Indication: SCHIZOPHRENIA, PARANOID TYPE
     Dosage: DONT RECALL DOSAGE FOR A/B 3 MONTHS
     Dates: start: 20070101
  23. SEROQUEL [Suspect]
     Indication: SCHIZOPHRENIA, PARANOID TYPE
     Route: 048
     Dates: start: 19970101
  24. COLONOPIN [Concomitant]
     Indication: BIPOLAR DISORDER
     Dosage: DONT RECALL DOSAGE FOR A/B 3 MONTHS
     Dates: start: 20070101
  25. NEURONTIN [Concomitant]
     Route: 048
     Dates: start: 20010101
  26. LORAZEPAM [Concomitant]
     Dates: start: 20010101
  27. SEROQUEL [Suspect]
     Indication: SCHIZOPHRENIA
     Route: 048
     Dates: start: 19970101
  28. SEROQUEL [Suspect]
     Indication: BIPOLAR DISORDER
     Route: 048
     Dates: start: 19970101
  29. DEPAKOTE [Concomitant]
     Indication: DEPRESSION
  30. LORAZEPAM [Concomitant]
     Dates: start: 19980915
  31. SEROQUEL [Suspect]
     Indication: SCHIZOAFFECTIVE DISORDER
     Route: 048
     Dates: start: 19970101
  32. SEROQUEL [Suspect]
     Indication: DEPRESSION
     Route: 048
     Dates: start: 19970101
  33. SEROQUEL [Suspect]
     Route: 048
     Dates: start: 20000101

REACTIONS (4)
  - WEIGHT INCREASED [None]
  - TYPE 2 DIABETES MELLITUS [None]
  - OBESITY [None]
  - PANCREATITIS [None]
